FAERS Safety Report 15808485 (Version 6)
Quarter: 2019Q2

REPORT INFORMATION
  Report Type: Report from Study
  Country: US (occurrence: US)
  Receive Date: 20190110
  Receipt Date: 20190403
  Transmission Date: 20190711
  Serious: Yes (Death, Hospitalization)
  Sender: FDA-Public Use
  Company Number: US-PFIZER INC-2019010551

PATIENT
  Age: 51 Year
  Sex: Female

DRUGS (12)
  1. OLARATUMAB [Suspect]
     Active Substance: OLARATUMAB
     Indication: SOFT TISSUE SARCOMA
     Dosage: 15 MG/KG, CYCLICAL DAYS ONE AND EIGHT OF EACH 21 DAY CYCLE
     Route: 042
     Dates: start: 20181126
  2. ZOLPIDEM [Concomitant]
     Active Substance: ZOLPIDEM\ZOLPIDEM TARTRATE
     Indication: INSOMNIA
     Dosage: UNK
     Dates: start: 2015
  3. LANSOPRAZOLE. [Concomitant]
     Active Substance: LANSOPRAZOLE
     Indication: GASTRITIS
     Dosage: UNK
     Dates: start: 2005
  4. BUPROPION. [Concomitant]
     Active Substance: BUPROPION
     Indication: DEPRESSION
     Dosage: UNK
     Dates: start: 201710
  5. ENOXAPARIN [Concomitant]
     Active Substance: ENOXAPARIN
     Indication: DEEP VEIN THROMBOSIS
     Dosage: UNK
     Dates: start: 20171026
  6. DOXORUBICIN HCL [Suspect]
     Active Substance: DOXORUBICIN HYDROCHLORIDE
     Indication: SOFT TISSUE SARCOMA
     Dosage: 25 MG/M2, CYCLICAL ON DAYS ONE TO THREE OF EACH 21 DAY CYCLE
     Route: 042
     Dates: start: 20181126
  7. MESNA. [Suspect]
     Active Substance: MESNA
     Indication: SOFT TISSUE SARCOMA
     Dosage: 1500 MG/M2, DAILY, ON DAYS ONE TO FOUR OF EACH 21 DAY CYCLE
     Route: 042
     Dates: start: 20181126
  8. GABAPENTIN. [Concomitant]
     Active Substance: GABAPENTIN
     Indication: FIBROMYALGIA
     Dosage: UNK
     Dates: start: 201709
  9. IFOSFAMIDE. [Suspect]
     Active Substance: IFOSFAMIDE
     Indication: SOFT TISSUE SARCOMA
     Dosage: 2500 MG/M2, CYCLICAL ON DAYS ONE TO FOUR OF EACH 21 DAY CYCLE
     Route: 042
     Dates: start: 20181126
  10. LEVOTHYROXINE. [Concomitant]
     Active Substance: LEVOTHYROXINE
     Indication: HYPOTHYROIDISM
     Dosage: UNK
     Dates: start: 2010
  11. FENTANYL. [Concomitant]
     Active Substance: FENTANYL
     Indication: PAIN IN EXTREMITY
     Dosage: UNK
     Dates: start: 201807
  12. OXYCODONE [Concomitant]
     Active Substance: OXYCODONE
     Indication: PAIN IN EXTREMITY
     Dosage: UNK
     Dates: start: 201710

REACTIONS (2)
  - Pneumonia [Fatal]
  - Febrile neutropenia [Fatal]

NARRATIVE: CASE EVENT DATE: 20181228
